FAERS Safety Report 5387870-8 (Version None)
Quarter: 2007Q3

REPORT INFORMATION
  Report Type: 
  Country: None (occurrence: None)
  Receive Date: 20070716
  Receipt Date: 20060804
  Transmission Date: 20080115
  Serious: No
  Sender: FDA-Public Use
  Company Number: A0615048A

PATIENT
  Age: 27 Year
  Sex: Female

DRUGS (1)
  1. NICORETTE [Suspect]
     Dates: start: 20060802, end: 20060802

REACTIONS (4)
  - MALAISE [None]
  - NAUSEA [None]
  - SALIVARY HYPERSECRETION [None]
  - THROAT IRRITATION [None]
